FAERS Safety Report 15757317 (Version 3)
Quarter: 2019Q1

REPORT INFORMATION
  Report Type: Report from Study
  Country: US (occurrence: US)
  Receive Date: 20181224
  Receipt Date: 20190314
  Transmission Date: 20190417
  Serious: No
  Sender: FDA-Public Use
  Company Number: PHEH2018US053871

PATIENT
  Sex: Female

DRUGS (1)
  1. COSENTYX [Suspect]
     Active Substance: SECUKINUMAB
     Indication: PSORIASIS
     Dosage: 300 MG, QMO
     Route: 058

REACTIONS (7)
  - Drug ineffective [Unknown]
  - Injection site pain [Unknown]
  - Pain [Unknown]
  - Peripheral swelling [Unknown]
  - Injection site vesicles [Unknown]
  - Pain in extremity [Unknown]
  - Urinary tract infection [Unknown]
